FAERS Safety Report 5999126-0 (Version None)
Quarter: 2008Q4

REPORT INFORMATION
  Report Type: 
  Country: None (occurrence: None)
  Receive Date: 20081215
  Receipt Date: 20071109
  Transmission Date: 20090506
  Serious: Yes (Other)
  Sender: FDA-Public Use
  Company Number: DE-PFIZER INC-2007095268

PATIENT

DRUGS (4)
  1. XALACOM [Suspect]
     Indication: INTRAOCULAR PRESSURE INCREASED
     Route: 047
     Dates: start: 20071107
  2. XALATAN [Suspect]
     Indication: INTRAOCULAR PRESSURE INCREASED
     Route: 047
     Dates: start: 20071107
  3. BUFLOMEDIL [Concomitant]
     Route: 048
  4. ISOGLAUCON [Concomitant]
     Route: 047
     Dates: end: 20071101

REACTIONS (2)
  - BLOOD PRESSURE INCREASED [None]
  - NIGHTMARE [None]
